FAERS Safety Report 4855667-0 (Version None)
Quarter: 2005Q4

REPORT INFORMATION
  Report Type: 
  Country: None (occurrence: None)
  Receive Date: 20051216
  Receipt Date: 20051208
  Transmission Date: 20060501
  Serious: Yes (Death, Congenital Anomaly)
  Sender: FDA-Public Use
  Company Number: DE-ABBOTT-05P-062-0319067-00

PATIENT
  Age: 0 Day

DRUGS (1)
  1. ERGENYL CHRONO TABLETS [Suspect]
     Indication: DRUG EXPOSURE DURING PREGNANCY

REACTIONS (3)
  - CONGENITAL HYDROCEPHALUS [None]
  - SPINA BIFIDA [None]
  - STILLBIRTH [None]
